FAERS Safety Report 4264822-2 (Version None)
Quarter: 2004Q1

REPORT INFORMATION
  Report Type: 
  Country: None (occurrence: None)
  Receive Date: 20040105
  Receipt Date: 20031215
  Transmission Date: 20041129
  Serious: Yes (Hospitalization)
  Sender: FDA-Public Use
  Company Number: 199710321RHF

PATIENT
  Age: 66 Year
  Sex: Female
  Weight: 88 kg

DRUGS (6)
  1. FUROSEMIDE [Suspect]
     Dosage: 80-40-0 MG PO
     Dates: end: 19961229
  2. KETOPROFEN (PROFENID ^PHARMA RHODIA^) GEL [Suspect]
     Dosage: TOP
  3. CAPTOPRIL [Suspect]
     Dosage: 25.0-25 MG PO
     Dates: end: 19961229
  4. CALCIUM CARBONATE (CALCIDIA) GRANULES [Suspect]
     Dosage: 3.85 G/DAY PO
  5. FERROUS SULFATE (FERO-GRAD) COATED TABLETS [Suspect]
     Dosage: 2 U/DAY PO
  6. ISOPHANE INSULIN (UMULINE PROTAMINE ISOPHANE) SUSPENSION FOR INJECTION [Suspect]
     Dosage: 15-0-4 IU

REACTIONS (18)
  - ALANINE AMINOTRANSFERASE DECREASED [None]
  - ANURIA [None]
  - BLOOD ALBUMIN DECREASED [None]
  - BONE DENSITY DECREASED [None]
  - BUNDLE BRANCH BLOCK LEFT [None]
  - C-REACTIVE PROTEIN INCREASED [None]
  - CARDIOMEGALY [None]
  - CONDITION AGGRAVATED [None]
  - DYSPNOEA [None]
  - FLUID OVERLOAD [None]
  - HAEMATOCRIT DECREASED [None]
  - HAEMODIALYSIS [None]
  - OEDEMA PERIPHERAL [None]
  - PULMONARY OEDEMA [None]
  - RENAL FAILURE [None]
  - RENAL TUBULAR NECROSIS [None]
  - RETICULOCYTE COUNT INCREASED [None]
  - VENOUS STENOSIS [None]
